FAERS Safety Report 12911681 (Version 1)
Quarter: 2016Q4

REPORT INFORMATION
  Report Type: Spontaneous
  Country: CO (occurrence: CO)
  Receive Date: 20161104
  Receipt Date: 20161104
  Transmission Date: 20170207
  Serious: Yes (Hospitalization, Other)
  Sender: FDA-Public Use
  Company Number: CO-PFIZER INC-2016114659

PATIENT
  Age: 72 Year
  Sex: Female

DRUGS (9)
  1. CALCIUM + VITAMIN D /01483701/ [Concomitant]
     Active Substance: CALCIUM\VITAMIN D
     Dosage: UNK
  2. XELJANZ [Suspect]
     Active Substance: TOFACITINIB CITRATE
     Indication: RHEUMATOID ARTHRITIS
     Dosage: 5 MG, 2X/DAY
     Route: 048
     Dates: start: 201510
  3. AMLODIPINO /00972401/ [Concomitant]
     Active Substance: AMLODIPINE BESYLATE
     Dosage: UNK
  4. ESOMEPRAZOL +PHARMA [Concomitant]
     Dosage: UNK
  5. ASPIRIN (E.C.) [Concomitant]
     Active Substance: ASPIRIN
     Dosage: UNK, 4X WEEK
  6. METOPROLOL. [Concomitant]
     Active Substance: METOPROLOL
     Dosage: UNK
  7. MEDROL /00049607/ [Concomitant]
     Dosage: UNK
  8. METOPROLOL. [Concomitant]
     Active Substance: METOPROLOL
     Dosage: UNK
  9. VALSARTAN. [Concomitant]
     Active Substance: VALSARTAN
     Dosage: UNK

REACTIONS (23)
  - Blood sodium decreased [Recovering/Resolving]
  - Limb discomfort [Not Recovered/Not Resolved]
  - Pain in extremity [Not Recovered/Not Resolved]
  - Neck pain [Recovered/Resolved]
  - Dizziness [Recovered/Resolved]
  - Chromaturia [Not Recovered/Not Resolved]
  - Syncope [Recovered/Resolved]
  - Pain [Unknown]
  - Arthralgia [Recovered/Resolved]
  - Blood cholesterol increased [Not Recovered/Not Resolved]
  - Viral infection [Not Recovered/Not Resolved]
  - Arrhythmia [Not Recovered/Not Resolved]
  - Somnolence [Unknown]
  - Foot deformity [Not Recovered/Not Resolved]
  - Back pain [Recovered/Resolved]
  - Eye disorder [Unknown]
  - Chills [Not Recovered/Not Resolved]
  - Arthritis [Not Recovered/Not Resolved]
  - Blood pressure decreased [Unknown]
  - Inflammation [Recovered/Resolved]
  - Gastroenteritis [Recovering/Resolving]
  - Blood potassium decreased [Recovering/Resolving]
  - Urine abnormality [Not Recovered/Not Resolved]

NARRATIVE: CASE EVENT DATE: 2016
